FAERS Safety Report 8296696-7 (Version None)
Quarter: 2012Q2

REPORT INFORMATION
  Report Type: 
  Country: None (occurrence: None)
  Receive Date: 20120418
  Receipt Date: 20120403
  Transmission Date: 20120825
  Serious: Yes (Other)
  Sender: FDA-Public Use
  Company Number: DE-BAXTER-2012BH004381

PATIENT
  Age: 51 Year
  Sex: Female

DRUGS (7)
  1. VITAMIN D [Concomitant]
     Route: 065
  2. EXTRANEAL [Suspect]
     Route: 033
     Dates: start: 20090116
  3. PHYSIOSOL IN PLASTIC CONTAINER [Suspect]
     Route: 033
     Dates: start: 20090116
  4. EPOGEN [Concomitant]
     Route: 065
  5. EXTRANEAL [Suspect]
     Route: 033
     Dates: start: 20071205, end: 20090116
  6. IRON [Concomitant]
     Route: 042
  7. PHYSIOSOL IN PLASTIC CONTAINER [Suspect]
     Route: 033
     Dates: start: 20071205, end: 20090116

REACTIONS (1)
  - PERITONITIS BACTERIAL [None]
